FAERS Safety Report 9794294 (Version 1)
Quarter: 2014Q1

REPORT INFORMATION
  Report Type: Spontaneous
  Country: US (occurrence: US)
  Receive Date: 20140102
  Receipt Date: 20140102
  Transmission Date: 20141002
  Serious: Yes (Other)
  Sender: FDA-Public Use
  Company Number: US-AMGEN-USASP2013088330

PATIENT
  Age: 71 Year
  Sex: Female

DRUGS (2)
  1. ENBREL [Suspect]
     Indication: RHEUMATOID ARTHRITIS
     Dosage: 50 MG, QWK
     Route: 065
     Dates: start: 20061001
  2. ENBREL [Suspect]
     Dosage: UNK
     Route: 065

REACTIONS (3)
  - Bronchitis [Recovered/Resolved]
  - Eczema [Not Recovered/Not Resolved]
  - Rash pruritic [Not Recovered/Not Resolved]
